FAERS Safety Report 24254734 (Version 2)
Quarter: 2024Q3

REPORT INFORMATION
  Report Type: Spontaneous
  Country: US (occurrence: US)
  Receive Date: 20240827
  Receipt Date: 20240828
  Transmission Date: 20241016
  Serious: No
  Sender: JOHNSON AND JOHNSON
  Company Number: US-JNJFOC-20240866416

PATIENT

DRUGS (2)
  1. SPRAVATO [Suspect]
     Active Substance: ESKETAMINE
     Indication: Product used for unknown indication
     Dosage: SPRAVATO SPRAY 28.00 MG
  2. LAMICTAL [Interacting]
     Active Substance: LAMOTRIGINE

REACTIONS (2)
  - Drug ineffective [Unknown]
  - Drug interaction [Unknown]
